FAERS Safety Report 5668144-4 (Version None)
Quarter: 2008Q1

REPORT INFORMATION
  Report Type: 
  Country: None (occurrence: None)
  Receive Date: 20080315
  Receipt Date: 20080215
  Transmission Date: 20080703
  Serious: No
  Sender: FDA-Public Use
  Company Number: US-ABBOTT-08P-163-0438649-00

PATIENT
  Sex: Male

DRUGS (1)
  1. HUMIRA [Suspect]
     Indication: PSORIASIS
     Route: 058
     Dates: start: 20071101

REACTIONS (5)
  - BURNING SENSATION [None]
  - COUGH [None]
  - NASOPHARYNGITIS [None]
  - NIGHT SWEATS [None]
  - PYREXIA [None]
